FAERS Safety Report 8879820 (Version 2)
Quarter: 2012Q4

REPORT INFORMATION
  Report Type: 
  Country: DE (occurrence: DE)
  Receive Date: 20121101
  Receipt Date: 20121119
  Transmission Date: 20130627
  Serious: Yes (Life-Threatening, Hospitalization)
  Sender: FDA-Public Use
  Company Number: DE-B.I. PHARMACEUTICALS,INC./RIDGEFIELD-2012-DE-02598DE

PATIENT
  Sex: Male
  Weight: 105 kg

DRUGS (2)
  1. PRADAXA [Suspect]
     Indication: ATRIAL FIBRILLATION
  2. TICAGRELOR [Concomitant]

REACTIONS (3)
  - Acute coronary syndrome [Unknown]
  - Angina unstable [Unknown]
  - Arteriosclerosis coronary artery [Unknown]
